FAERS Safety Report 13612045 (Version 1)
Quarter: 2017Q2

REPORT INFORMATION
  Report Type: Spontaneous
  Country: DE (occurrence: DE)
  Receive Date: 20170605
  Receipt Date: 20170605
  Transmission Date: 20170830
  Serious: Yes (Other)
  Sender: FDA-Public Use
  Company Number: DE-MYLANLABS-2017M1032775

PATIENT

DRUGS (2)
  1. TAMSULOSIN-DURA 0,4 MG [Suspect]
     Active Substance: TAMSULOSIN
     Indication: PRODUCT USED FOR UNKNOWN INDICATION
     Dosage: 1 DF, UNK
     Route: 048
  2. CICLOPOLI [Suspect]
     Active Substance: CICLOPIROX
     Indication: PRODUCT USED FOR UNKNOWN INDICATION
     Dosage: UNK
     Route: 061

REACTIONS (5)
  - Pruritus [Unknown]
  - Dry mouth [Recovering/Resolving]
  - Onychomycosis [Recovering/Resolving]
  - Rash [Unknown]
  - Anaphylactic shock [Unknown]
